FAERS Safety Report 10039906 (Version 1)
Quarter: 2014Q1

REPORT INFORMATION
  Report Type: Spontaneous
  Country: US (occurrence: US)
  Receive Date: 20140326
  Receipt Date: 20140326
  Transmission Date: 20141002
  Serious: Yes (Other)
  Sender: FDA-Public Use
  Company Number: US-PFIZER INC-2014086386

PATIENT
  Age: 11 Year
  Sex: Male
  Weight: 74.83 kg

DRUGS (1)
  1. HYDROCORTISONE [Suspect]
     Indication: AUTONOMIC NERVOUS SYSTEM IMBALANCE
     Dosage: (5 MG IN MORNING AND 2.5 MG IN AFTERNOON), 2X/DAY

REACTIONS (1)
  - Coeliac disease [Unknown]
